FAERS Safety Report 11224059 (Version 1)
Quarter: 2015Q2

REPORT INFORMATION
  Report Type: Spontaneous
  Country: US (occurrence: US)
  Receive Date: 20150629
  Receipt Date: 20150629
  Transmission Date: 20150821
  Serious: No
  Sender: FDA-Public Use
  Company Number: US-009507513-1506USA012840

PATIENT
  Age: 72 Year
  Sex: Male

DRUGS (1)
  1. JANUMET [Suspect]
     Active Substance: METFORMIN HYDROCHLORIDE\SITAGLIPTIN PHOSPHATE
     Indication: DIABETES MELLITUS
     Dosage: DOSE/FREQUENCY: 50/1000 MG,1 TABLET, TWICE A DAY
     Route: 048
     Dates: end: 20150623

REACTIONS (2)
  - Gastrointestinal disorder [Unknown]
  - Vomiting [Unknown]
